FAERS Safety Report 24145194 (Version 1)
Quarter: 2024Q3

REPORT INFORMATION
  Report Type: Spontaneous
  Country: US (occurrence: US)
  Receive Date: 20240729
  Receipt Date: 20240729
  Transmission Date: 20241016
  Serious: Yes (Other)
  Sender: TEVA
  Company Number: US-TEVA-VS-3223023

PATIENT
  Sex: Female

DRUGS (2)
  1. PROAIR HFA [Suspect]
     Active Substance: ALBUTEROL SULFATE
     Indication: Asthma
     Route: 065
  2. PROAIR HFA [Suspect]
     Active Substance: ALBUTEROL SULFATE
     Indication: Disability

REACTIONS (5)
  - Cerebral palsy [Unknown]
  - Chest discomfort [Unknown]
  - Respiration abnormal [Unknown]
  - Disability [Unknown]
  - Muscle tightness [Unknown]
